FAERS Safety Report 11478160 (Version 2)
Quarter: 2016Q1

REPORT INFORMATION
  Report Type: Spontaneous
  Country: US (occurrence: US)
  Receive Date: 20150909
  Receipt Date: 20160104
  Transmission Date: 20160525
  Serious: No
  Sender: FDA-Public Use
  Company Number: US-BAYER-2015-410520

PATIENT
  Age: 75 Year
  Sex: Female
  Weight: 69 kg

DRUGS (10)
  1. OPTI SAFE AREDS [Concomitant]
  2. CHONDROITIN [Concomitant]
     Active Substance: CHONDROITIN
  3. CLONAZEPAM. [Concomitant]
     Active Substance: CLONAZEPAM
  4. CITRACAL CALCIUM + D SLOW RELEASE 1200 [Suspect]
     Active Substance: CALCIUM CITRATE
     Dosage: 1 DF, BID
     Route: 048
     Dates: start: 201508
  5. ALEVE [Suspect]
     Active Substance: NAPROXEN SODIUM
     Indication: INFLAMMATION
  6. FISH OIL [Concomitant]
     Active Substance: FISH OIL
  7. ALEVE [Suspect]
     Active Substance: NAPROXEN SODIUM
     Indication: ARTHRITIS
     Dosage: 1 DF, PRN
     Route: 048
     Dates: start: 201508, end: 201508
  8. BAYER ASPIRIN REGIMEN CHEWABLE LOW DOSE ASPIRIN ORANGE [Suspect]
     Active Substance: ASPIRIN
     Indication: ISCHAEMIC HEART DISEASE PROPHYLAXIS
     Dosage: 1 DF, QD
     Route: 048
     Dates: start: 2013
  9. PRIMIDONE. [Concomitant]
     Active Substance: PRIMIDONE
  10. TURMERIC [Concomitant]
     Active Substance: TURMERIC

REACTIONS (4)
  - Product use issue [None]
  - Product use issue [None]
  - Tremor [Recovered/Resolved]
  - Product use issue [None]

NARRATIVE: CASE EVENT DATE: 2013
